FAERS Safety Report 9977604 (Version 1)
Quarter: 2014Q1

REPORT INFORMATION
  Report Type: Report from Study
  Country: US (occurrence: US)
  Receive Date: 20140306
  Receipt Date: 20140306
  Transmission Date: 20141002
  Serious: No
  Sender: FDA-Public Use
  Company Number: US-ABBVIE-13P-163-1162828-00

PATIENT
  Age: 51 Year
  Sex: Female

DRUGS (6)
  1. HUMIRA [Suspect]
     Indication: COLITIS ULCERATIVE
     Dosage: FOUR 40MG INJECTIONS
     Dates: start: 20131014
  2. LIALDA [Concomitant]
     Indication: ABDOMINAL PAIN UPPER
     Dosage: 4 TABLETS DAILY
  3. DIOVAN HCT [Concomitant]
     Indication: BLOOD PRESSURE
  4. LEVOTHYROXINE [Concomitant]
     Indication: THYROID DISORDER
     Dosage: 100 MCG ALT WITH 88 MCG EVERY OTHER DAY
  5. SINGULAIR [Concomitant]
     Indication: HYPERSENSITIVITY
  6. UCERIS [Concomitant]
     Indication: PRODUCT USED FOR UNKNOWN INDICATION

REACTIONS (3)
  - Abdominal pain upper [Not Recovered/Not Resolved]
  - Diarrhoea [Not Recovered/Not Resolved]
  - Malaise [Not Recovered/Not Resolved]
